FAERS Safety Report 9261596 (Version 1)
Quarter: 2013Q2

REPORT INFORMATION
  Report Type: Spontaneous
  Country: US (occurrence: US)
  Receive Date: 20130429
  Receipt Date: 20130429
  Transmission Date: 20140414
  Serious: Yes (Disabling, Other)
  Sender: FDA-Public Use
  Company Number: US-PFIZER INC-2013129558

PATIENT
  Age: 54 Year
  Sex: Male
  Weight: 78.01 kg

DRUGS (3)
  1. RAPAMUNE [Suspect]
     Indication: RENAL TRANSPLANT
     Dosage: 3 MG, 1X/DAY
     Dates: start: 1996
  2. CELLCEPT [Concomitant]
     Indication: RENAL TRANSPLANT
     Dosage: 1000 MG, 2X/DAY
  3. PREDNISONE [Concomitant]
     Indication: RENAL TRANSPLANT
     Dosage: 5 MG, 1X/DAY

REACTIONS (2)
  - Visual acuity reduced [Unknown]
  - Retinitis pigmentosa [Unknown]
